FAERS Safety Report 16464359 (Version 17)
Quarter: 2022Q3

REPORT INFORMATION
  Report Type: Report from Study
  Country: JP (occurrence: JP)
  Receive Date: 20190621
  Receipt Date: 20220804
  Transmission Date: 20221026
  Serious: Yes (Hospitalization, Other)
  Sender: FDA-Public Use
  Company Number: JP-ONO-2019JP021834

PATIENT
  Age: 65 Year
  Sex: Female
  Weight: 76 kg

DRUGS (31)
  1. ETELCALCETIDE [Suspect]
     Active Substance: ETELCALCETIDE
     Indication: Hyperparathyroidism secondary
     Dosage: 5 MILLIGRAM (UNK-11/OCT/2018)
     Route: 010
  2. ETELCALCETIDE [Suspect]
     Active Substance: ETELCALCETIDE
     Dosage: 5 MILLIGRAM, Q56H
     Route: 010
     Dates: start: 20190413, end: 20190715
  3. ETELCALCETIDE [Suspect]
     Active Substance: ETELCALCETIDE
     Dosage: 2.5 MILLIGRAM, Q56H
     Route: 010
     Dates: start: 20190716, end: 20200101
  4. ETELCALCETIDE [Suspect]
     Active Substance: ETELCALCETIDE
     Dosage: 2.5 MILLIGRAM, QWK
     Route: 010
     Dates: start: 20200111, end: 20211009
  5. ETELCALCETIDE [Suspect]
     Active Substance: ETELCALCETIDE
     Dosage: 5 MILLIGRAM, Q56H
     Route: 010
     Dates: start: 20211016
  6. DARBEPOETIN ALFA [Concomitant]
     Active Substance: DARBEPOETIN ALFA
     Dosage: 10 MICROGRAM, QWK
     Route: 065
     Dates: start: 20190426, end: 20190513
  7. DARBEPOETIN ALFA [Concomitant]
     Active Substance: DARBEPOETIN ALFA
     Dosage: 20 MICROGRAM, QWK
     Route: 065
     Dates: start: 20190615, end: 20190906
  8. DARBEPOETIN ALFA [Concomitant]
     Active Substance: DARBEPOETIN ALFA
     Dosage: 20 MICROGRAM, QWK
     Route: 065
     Dates: start: 20190907, end: 20191230
  9. DARBEPOETIN ALFA [Concomitant]
     Active Substance: DARBEPOETIN ALFA
     Dosage: 30 MICROGRAM, QWK
     Route: 065
     Dates: start: 20200104, end: 20200403
  10. DARBEPOETIN ALFA [Concomitant]
     Active Substance: DARBEPOETIN ALFA
     Dosage: 20 MICROGRAM, QWK
     Route: 065
     Dates: start: 20200404, end: 20200529
  11. DARBEPOETIN ALFA [Concomitant]
     Active Substance: DARBEPOETIN ALFA
     Dosage: 30 MICROGRAM, QWK
     Route: 065
     Dates: start: 20200530, end: 20210430
  12. DARBEPOETIN ALFA [Concomitant]
     Active Substance: DARBEPOETIN ALFA
     Dosage: 40 MICROGRAM, QWK
     Route: 065
     Dates: start: 20210501, end: 20211001
  13. DARBEPOETIN ALFA [Concomitant]
     Active Substance: DARBEPOETIN ALFA
     Dosage: 30 MICROGRAM, QWK
     Route: 065
     Dates: start: 20211002, end: 20211119
  14. DARBEPOETIN ALFA [Concomitant]
     Active Substance: DARBEPOETIN ALFA
     Dosage: 40 MICROGRAM, QWK
     Route: 065
     Dates: start: 20211120
  15. MAXACALCITOL [Concomitant]
     Active Substance: MAXACALCITOL
     Dosage: 2.5 MICROGRAM, Q56H
     Route: 010
     Dates: start: 20181013, end: 20190518
  16. MAXACALCITOL [Concomitant]
     Active Substance: MAXACALCITOL
     Dosage: 5 MICROGRAM, Q56H
     Route: 010
     Dates: start: 20190521, end: 20190816
  17. MAXACALCITOL [Concomitant]
     Active Substance: MAXACALCITOL
     Dosage: 2.5 MICROGRAM, Q84H
     Route: 010
     Dates: start: 20190914, end: 20191115
  18. MAXACALCITOL [Concomitant]
     Active Substance: MAXACALCITOL
     Dosage: 2.5 MICROGRAM, Q56H
     Route: 010
     Dates: start: 20191116, end: 20200122
  19. MAXACALCITOL [Concomitant]
     Active Substance: MAXACALCITOL
     Dosage: 5 MICROGRAM, Q56H
     Route: 010
     Dates: start: 20200123, end: 20200217
  20. MAXACALCITOL [Concomitant]
     Active Substance: MAXACALCITOL
     Dosage: 2.5 MICROGRAM, Q56H
     Route: 010
     Dates: start: 20200218, end: 20210511
  21. MAXACALCITOL [Concomitant]
     Active Substance: MAXACALCITOL
     Dosage: 2.5 MICROGRAM, Q84H
     Route: 010
     Dates: start: 20210513, end: 20211217
  22. MAXACALCITOL [Concomitant]
     Active Substance: MAXACALCITOL
     Dosage: 2.5 MICROGRAM, Q56H
     Route: 010
     Dates: start: 20211218, end: 20220528
  23. FESIN MITSUBISHI [Concomitant]
     Dosage: 80 MILLIGRAM, QWK
     Route: 065
     Dates: start: 20190513, end: 20190614
  24. FESIN MITSUBISHI [Concomitant]
     Dosage: 80 MILLIGRAM, QWK
     Route: 065
     Dates: start: 20200121, end: 20200222
  25. FESIN MITSUBISHI [Concomitant]
     Dosage: 80 MILLIGRAM, QWK
     Route: 065
     Dates: start: 20200919, end: 20201020
  26. FESIN MITSUBISHI [Concomitant]
     Dosage: 80 MILLIGRAM, QWK
     Route: 065
     Dates: start: 20210116, end: 20210218
  27. FESIN MITSUBISHI [Concomitant]
     Dosage: 80 MILLIGRAM, QWK
     Route: 065
     Dates: start: 20210501, end: 20210601
  28. FESIN MITSUBISHI [Concomitant]
     Dosage: 80 MILLIGRAM, QWK
     Route: 065
     Dates: start: 20210928, end: 20211030
  29. FESIN MITSUBISHI [Concomitant]
     Dosage: 80 MILLIGRAM, QWK
     Route: 065
     Dates: start: 20220217, end: 20220324
  30. FESIN MITSUBISHI [Concomitant]
     Dosage: 80 MILLIGRAM, QWK
     Route: 065
     Dates: start: 20220517, end: 20220618
  31. CALCIUM CARBONATE [Concomitant]
     Active Substance: CALCIUM CARBONATE
     Dosage: 3000 MILLIGRAM, QD
     Route: 048

REACTIONS (11)
  - Shunt occlusion [Recovered/Resolved]
  - Shunt occlusion [Recovered/Resolved]
  - Shunt occlusion [Recovered/Resolved]
  - Shunt occlusion [Recovered/Resolved]
  - Shunt stenosis [Recovered/Resolved]
  - Shunt stenosis [Recovered/Resolved]
  - Shunt stenosis [Recovered/Resolved]
  - Shunt stenosis [Recovered/Resolved]
  - Shunt occlusion [Recovered/Resolved]
  - Shunt occlusion [Recovered/Resolved]
  - Shunt occlusion [Recovered/Resolved]

NARRATIVE: CASE EVENT DATE: 20190405
